FAERS Safety Report 9552885 (Version 1)
Quarter: 2013Q3

REPORT INFORMATION
  Report Type: Spontaneous
  Country: US (occurrence: US)
  Receive Date: 20130925
  Receipt Date: 20130925
  Transmission Date: 20140515
  Serious: No
  Sender: FDA-Public Use
  Company Number: US-PURDUE-USA-2013-0102802

PATIENT
  Sex: Female

DRUGS (1)
  1. MORPHINE SULFATE EXTENDED-RELEASE TABLETS (RHODES 74-769, 74-862) [Suspect]
     Indication: PAIN
     Dosage: 30 MG, UNK
     Route: 048

REACTIONS (3)
  - Pain [Unknown]
  - Unevaluable event [Unknown]
  - Product colour issue [Recovered/Resolved]
